FAERS Safety Report 18280955 (Version 3)
Quarter: 2022Q3

REPORT INFORMATION
  Report Type: Spontaneous
  Country: CA (occurrence: CA)
  Receive Date: 20200918
  Receipt Date: 20220705
  Transmission Date: 20221026
  Serious: Yes (Hospitalization, Other)
  Sender: FDA-Public Use
  Company Number: None

PATIENT
  Age: 52 Year
  Sex: Female

DRUGS (6)
  1. LISINOPRIL [Suspect]
     Active Substance: LISINOPRIL
     Indication: Product used for unknown indication
     Route: 048
  2. CIPROFLOXACIN HYDROCHLORIDE [Suspect]
     Active Substance: CIPROFLOXACIN HYDROCHLORIDE
     Indication: Product used for unknown indication
     Route: 065
  3. MOXIFLOXACIN HYDROCHLORIDE [Suspect]
     Active Substance: MOXIFLOXACIN HYDROCHLORIDE
     Indication: Product used for unknown indication
     Route: 065
  4. HYDROCHLOROTHIAZIDE [Suspect]
     Active Substance: HYDROCHLOROTHIAZIDE
     Indication: Product used for unknown indication
     Route: 065
  5. MAVIK [Suspect]
     Active Substance: TRANDOLAPRIL
     Indication: Product used for unknown indication
     Route: 065
  6. OMALIZUMAB [Suspect]
     Active Substance: OMALIZUMAB
     Indication: Chronic spontaneous urticaria
     Dosage: 150.0MG UNKNOWN
     Route: 058
     Dates: start: 20190103

REACTIONS (20)
  - Drug hypersensitivity [Unknown]
  - Angioedema [Recovering/Resolving]
  - Face oedema [Unknown]
  - Urticaria [Unknown]
  - Swollen tongue [Unknown]
  - Swelling face [Recovering/Resolving]
  - Headache [Unknown]
  - Syncope [Unknown]
  - Rash [Unknown]
  - Pruritus [Unknown]
  - Pharyngeal oedema [Unknown]
  - Drug intolerance [Unknown]
  - Dyspnoea [Unknown]
  - Erythema [Recovering/Resolving]
  - Facial asymmetry [Unknown]
  - Oxygen saturation decreased [Unknown]
  - Skin plaque [Unknown]
  - Swelling [Unknown]
  - Uterine leiomyoma [Unknown]
  - Pneumonia [Unknown]

NARRATIVE: CASE EVENT DATE: 20170401
